FAERS Safety Report 17683960 (Version 1)
Quarter: 2020Q2

REPORT INFORMATION
  Report Type: Spontaneous
  Country: US (occurrence: US)
  Receive Date: 20200417
  Receipt Date: 20200417
  Transmission Date: 20200714
  Serious: Yes (Death)
  Sender: FDA-Public Use
  Company Number: None

PATIENT
  Age: 44 Year
  Sex: Female

DRUGS (1)
  1. OXALIPLATIN 50MG/10ML SDV INJ [Suspect]
     Active Substance: OXALIPLATIN
     Dosage: ?          OTHER FREQUENCY:OTHER;?
     Route: 042
     Dates: start: 201910, end: 20200412

REACTIONS (1)
  - Death [None]

NARRATIVE: CASE EVENT DATE: 20200412
